FAERS Safety Report 26075136 (Version 1)
Quarter: 2025Q4

REPORT INFORMATION
  Report Type: Spontaneous
  Country: US (occurrence: US)
  Receive Date: 20251121
  Receipt Date: 20251121
  Transmission Date: 20260118
  Serious: No
  Sender: COSETTE PHARMACEUTICALS INC
  Company Number: US-COSETTE-CP2025US001105

PATIENT
  Age: 47 Year
  Sex: Male

DRUGS (1)
  1. AMBIEN [Suspect]
     Active Substance: ZOLPIDEM TARTRATE
     Indication: Product used for unknown indication
     Route: 065

REACTIONS (1)
  - Drug ineffective [Unknown]
